FAERS Safety Report 7553924-0 (Version None)
Quarter: 2011Q2

REPORT INFORMATION
  Report Type: 
  Country: None (occurrence: None)
  Receive Date: 20110617
  Receipt Date: 20110608
  Transmission Date: 20111010
  Serious: Yes (Death)
  Sender: FDA-Public Use
  Company Number: JP-AMGEN-JPNCT2011014637

PATIENT
  Age: 53 Year
  Sex: Female
  Weight: 48 kg

DRUGS (10)
  1. LEUCOVORIN CALCIUM [Concomitant]
     Route: 041
     Dates: start: 20110126, end: 20110126
  2. KYTRIL [Concomitant]
     Indication: PROPHYLAXIS OF NAUSEA AND VOMITING
     Route: 041
     Dates: start: 20110126, end: 20110126
  3. PRIMPERAN TAB [Concomitant]
     Indication: PROPHYLAXIS OF NAUSEA AND VOMITING
     Route: 041
     Dates: start: 20110126, end: 20110126
  4. DECADRON [Concomitant]
     Indication: PROPHYLAXIS OF NAUSEA AND VOMITING
     Route: 041
     Dates: start: 20110126, end: 20110126
  5. ZANTAC [Concomitant]
     Indication: PROPHYLAXIS OF NAUSEA AND VOMITING
     Route: 041
     Dates: start: 20110126, end: 20110126
  6. LEUCOVORIN CALCIUM [Concomitant]
     Indication: COLORECTAL CANCER
     Route: 041
     Dates: start: 20110126
  7. TOPOTECAN [Suspect]
     Indication: COLORECTAL CANCER
     Route: 041
     Dates: start: 20110126, end: 20110126
  8. PANITUMUMAB [Suspect]
     Indication: COLORECTAL CANCER METASTATIC
     Dosage: UNK UNK, Q2WK
     Route: 041
     Dates: start: 20110126
  9. FLUOROURACIL [Suspect]
     Indication: COLORECTAL CANCER
     Route: 040
     Dates: start: 20110126, end: 20110126
  10. FLUOROURACIL [Suspect]
     Route: 041
     Dates: start: 20110126, end: 20110127

REACTIONS (4)
  - NEUTROPENIA [None]
  - PYREXIA [None]
  - DIARRHOEA [None]
  - OROPHARYNGEAL PAIN [None]
